FAERS Safety Report 6263919-5 (Version None)
Quarter: 2009Q3

REPORT INFORMATION
  Report Type: 
  Country: None (occurrence: None)
  Receive Date: 20090708
  Receipt Date: 20090708
  Transmission Date: 20100115
  Serious: Yes (Hospitalization)
  Sender: FDA-Public Use
  Company Number: None

PATIENT
  Sex: Female
  Weight: 75.2 kg

DRUGS (1)
  1. SOTALOL HCL [Suspect]
     Indication: ATRIAL FIBRILLATION
     Dosage: 120MG SOTALOL BID PO
     Route: 048
     Dates: start: 20090413

REACTIONS (3)
  - ATRIAL FIBRILLATION [None]
  - DISEASE RECURRENCE [None]
  - ELECTROCARDIOGRAM QT PROLONGED [None]
